FAERS Safety Report 10974366 (Version 2)
Quarter: 2015Q2

REPORT INFORMATION
  Report Type: Report from Study
  Country: BR (occurrence: BR)
  Receive Date: 20150401
  Receipt Date: 20150407
  Transmission Date: 20150821
  Serious: Yes (Disabling)
  Sender: FDA-Public Use
  Company Number: BR-ABBVIE-15K-020-1367113-00

PATIENT
  Age: 43 Year
  Sex: Male
  Weight: 90 kg

DRUGS (7)
  1. HUMIRA [Suspect]
     Active Substance: ADALIMUMAB
     Indication: ANKYLOSING SPONDYLITIS
     Route: 058
     Dates: start: 20140512
  2. VIMOVO [Concomitant]
     Active Substance: ESOMEPRAZOLE MAGNESIUM\NAPROXEN
     Indication: PAIN
     Route: 048
     Dates: start: 2013
  3. VITAMIN B NOS [Concomitant]
     Active Substance: VITAMIN B
     Indication: VITAMIN B COMPLEX DEFICIENCY
     Route: 048
     Dates: start: 201501
  4. BENICAR [Concomitant]
     Active Substance: OLMESARTAN MEDOXOMIL
     Indication: HYPERTENSION
     Route: 048
     Dates: start: 2011
  5. NEXIUM [Concomitant]
     Active Substance: ESOMEPRAZOLE MAGNESIUM
     Indication: GASTRIC DISORDER
     Route: 048
     Dates: start: 2012
  6. VITAMIN D [Concomitant]
     Active Substance: CHOLECALCIFEROL
     Indication: VITAMIN D DEFICIENCY
     Route: 048
     Dates: start: 201501
  7. MOTILIUM [Concomitant]
     Active Substance: DOMPERIDONE
     Indication: GASTROOESOPHAGEAL REFLUX DISEASE
     Route: 048
     Dates: start: 2012

REACTIONS (9)
  - Pain [Unknown]
  - Intraocular pressure increased [Recovering/Resolving]
  - Dry eye [Unknown]
  - Drug ineffective [Not Recovered/Not Resolved]
  - Cataract [Recovering/Resolving]
  - Uveitis [Unknown]
  - Activities of daily living impaired [Unknown]
  - Eye irritation [Recovering/Resolving]
  - Ocular hyperaemia [Unknown]

NARRATIVE: CASE EVENT DATE: 201409
